FAERS Safety Report 20216596 (Version 1)
Quarter: 2021Q4

REPORT INFORMATION
  Report Type: Spontaneous
  Country: US (occurrence: None)
  Receive Date: 20211221
  Receipt Date: 20211221
  Transmission Date: 20220303
  Serious: Yes (Death, Life-Threatening, Hospitalization)
  Sender: FDA-Public Use
  Company Number: None

PATIENT
  Age: 72 Year
  Sex: Male
  Weight: 83 kg

DRUGS (1)
  1. PEMBROLIZUMAB [Suspect]
     Active Substance: PEMBROLIZUMAB
     Dosage: FREQUENCY : ONCE;?OTHER ROUTE : IV;?
     Route: 050
     Dates: start: 20211008, end: 20211008

REACTIONS (5)
  - Acute respiratory failure [None]
  - Pulmonary function test decreased [None]
  - Pulmonary toxicity [None]
  - Hypersensitivity pneumonitis [None]
  - Infection [None]

NARRATIVE: CASE EVENT DATE: 20211008
